FAERS Safety Report 5776281-9 (Version None)
Quarter: 2008Q2

REPORT INFORMATION
  Report Type: 
  Country: None (occurrence: None)
  Receive Date: 20080617
  Receipt Date: 20080617
  Transmission Date: 20081010
  Serious: Yes (Hospitalization)
  Sender: FDA-Public Use
  Company Number: None

PATIENT
  Age: 79 Year
  Sex: Female
  Weight: 61 kg

DRUGS (9)
  1. IBUROFEN [Suspect]
     Indication: PAIN
     Dosage: 400 MG Q6H PRN PO  CHRONIC
     Route: 048
  2. MORPHINE [Concomitant]
  3. PROPAFENONE HCL [Concomitant]
  4. VIT D [Concomitant]
  5. IRON [Concomitant]
  6. AMBIEN [Concomitant]
  7. VERAPAMIL [Concomitant]
  8. LASIX [Concomitant]
  9. BONIVA [Concomitant]

REACTIONS (4)
  - GASTRIC DISORDER [None]
  - GASTRIC ULCER [None]
  - HAEMATEMESIS [None]
  - UPPER GASTROINTESTINAL HAEMORRHAGE [None]
